FAERS Safety Report 23530261 (Version 3)
Quarter: 2024Q2

REPORT INFORMATION
  Report Type: Report from Study
  Country: IT (occurrence: IT)
  Receive Date: 20240216
  Receipt Date: 20240402
  Transmission Date: 20240715
  Serious: Yes (Hospitalization, Other)
  Sender: FDA-Public Use
  Company Number: IT-UCBSA-2024007447

PATIENT
  Age: 73 Year
  Sex: Male

DRUGS (1)
  1. NEUPRO [Suspect]
     Active Substance: ROTIGOTINE
     Indication: Parkinson^s disease
     Dosage: 4 MILLIGRAM, ONCE DAILY (QD)
     Route: 062
     Dates: end: 20240325

REACTIONS (9)
  - Spinal stenosis [Unknown]
  - Spinal operation [Unknown]
  - Spinal compression fracture [Unknown]
  - Hypotension [Unknown]
  - Weight increased [Unknown]
  - Neuralgia [Unknown]
  - Wheelchair user [Unknown]
  - Rehabilitation therapy [Unknown]
  - Wrong technique in product usage process [Unknown]

NARRATIVE: CASE EVENT DATE: 20230913
